FAERS Safety Report 10748051 (Version 4)
Quarter: 2015Q2

REPORT INFORMATION
  Report Type: Spontaneous
  Country: JP (occurrence: JP)
  Receive Date: 20150129
  Receipt Date: 20150501
  Transmission Date: 20150821
  Serious: Yes (Other)
  Sender: FDA-Public Use
  Company Number: JP-GLAXOSMITHKLINE-JP2015JPN008679

PATIENT
  Sex: Male
  Weight: 49 kg

DRUGS (4)
  1. ARICEPT [Concomitant]
     Active Substance: DONEPEZIL HYDROCHLORIDE
     Dosage: 5 MG, QD
     Dates: start: 20141023, end: 201501
  2. URIEF [Concomitant]
     Active Substance: SILODOSIN
     Dosage: 2 MG, BID
     Dates: start: 20141023, end: 201501
  3. GASMOTIN [Concomitant]
     Active Substance: MOSAPRIDE CITRATE
     Dosage: 5 MG, TID
     Dates: start: 20141023, end: 201501
  4. VOTRIENT [Suspect]
     Active Substance: PAZOPANIB HYDROCHLORIDE
     Indication: ANGIOSARCOMA
     Dosage: 200 MG, QD
     Route: 048
     Dates: start: 20141224, end: 20141231

REACTIONS (1)
  - Altered state of consciousness [Unknown]
